FAERS Safety Report 15146447 (Version 2)
Quarter: 2018Q3

REPORT INFORMATION
  Report Type: Spontaneous
  Country: IT (occurrence: IT)
  Receive Date: 20180715
  Receipt Date: 20180802
  Transmission Date: 20181010
  Serious: Yes (Hospitalization)
  Sender: FDA-Public Use
  Company Number: PHHY2018IT042230

PATIENT
  Age: 62 Year
  Sex: Female

DRUGS (8)
  1. DALMADORM [Concomitant]
     Active Substance: FLURAZEPAM HYDROCHLORIDE
     Indication: ANXIETY
     Dosage: 1 UNK, UNK
     Route: 048
  2. FLUVOXAMINA [Concomitant]
     Active Substance: FLUVOXAMINE
     Indication: DEPRESSION
     Dosage: 2 UNK, UNK
     Route: 048
  3. OLANZAPIN ACTAVIS [Concomitant]
     Active Substance: OLANZAPINE
     Indication: PSYCHOTIC DISORDER
     Dosage: 1 DF, UNK
     Route: 048
  4. LEVOPRAID [Concomitant]
     Indication: ANXIETY
     Dosage: 3 DF, UNK (ABUSO / USO IMPROPRIO)
     Route: 048
  5. TRITTICO [Suspect]
     Active Substance: TRAZODONE HYDROCHLORIDE
     Indication: SEDATION
     Dosage: 10 DF, UNK
     Route: 048
     Dates: start: 20180411, end: 20180411
  6. ALPRAZOLAM. [Concomitant]
     Active Substance: ALPRAZOLAM
     Indication: ANXIETY
     Dosage: 3 UNK, UNK
     Route: 048
  7. LORAZEPAM. [Suspect]
     Active Substance: LORAZEPAM
     Indication: ANXIETY
     Dosage: 10 DF, UNK
     Route: 065
     Dates: start: 20180411, end: 20180411
  8. QUETIAPINA TEVA [Suspect]
     Active Substance: QUETIAPINE
     Indication: PSYCHOTIC DISORDER
     Dosage: 10 DF, UNK
     Route: 048
     Dates: start: 20180411, end: 20180411

REACTIONS (2)
  - Sopor [Recovered/Resolved]
  - Drug abuse [Recovered/Resolved]

NARRATIVE: CASE EVENT DATE: 20180411
